FAERS Safety Report 12183827 (Version 1)
Quarter: 2016Q1

REPORT INFORMATION
  Report Type: Other
  Country: US (occurrence: US)
  Receive Date: 20160316
  Receipt Date: 20160316
  Transmission Date: 20160526
  Serious: Yes (Other)
  Sender: FDA-Public Use
  Company Number: US-ACORDA-ACO_121346_2016

PATIENT
  Age: 60 Year
  Sex: Female

DRUGS (6)
  1. BYSTOLIC [Concomitant]
     Active Substance: NEBIVOLOL HYDROCHLORIDE
     Indication: PRODUCT USED FOR UNKNOWN INDICATION
  2. TECFIDERA [Concomitant]
     Active Substance: DIMETHYL FUMARATE
     Indication: PRODUCT USED FOR UNKNOWN INDICATION
  3. DONEPEZIL HCL [Concomitant]
     Active Substance: DONEPEZIL HYDROCHLORIDE
     Indication: PRODUCT USED FOR UNKNOWN INDICATION
  4. BACLOFEN. [Concomitant]
     Active Substance: BACLOFEN
     Indication: PRODUCT USED FOR UNKNOWN INDICATION
  5. DULOXETINE HCL [Concomitant]
     Active Substance: DULOXETINE HYDROCHLORIDE
     Indication: PRODUCT USED FOR UNKNOWN INDICATION
  6. AMPYRA [Suspect]
     Active Substance: DALFAMPRIDINE
     Indication: MULTIPLE SCLEROSIS
     Dosage: 10 MG, Q 12 HRS
     Route: 048

REACTIONS (15)
  - Vitreous floaters [Unknown]
  - Weight increased [Unknown]
  - Visual impairment [Unknown]
  - Drug dose omission [Unknown]
  - Depression [Unknown]
  - Arthralgia [Unknown]
  - Amnesia [Unknown]
  - Blood pressure increased [Unknown]
  - Activities of daily living impaired [Unknown]
  - Bronchitis [Unknown]
  - Multiple sclerosis [Unknown]
  - Oral disorder [Unknown]
  - Hypoaesthesia [Unknown]
  - Malaise [Unknown]
  - Drug ineffective [Unknown]
